FAERS Safety Report 9787724 (Version 2)
Quarter: 2014Q1

REPORT INFORMATION
  Report Type: Spontaneous
  Country: FR (occurrence: FR)
  Receive Date: 20131230
  Receipt Date: 20140318
  Transmission Date: 20141002
  Serious: Yes (Hospitalization, Other)
  Sender: FDA-Public Use
  Company Number: FR-JNJFOC-20131214991

PATIENT
  Age: 84 Year
  Sex: Female

DRUGS (11)
  1. XARELTO [Suspect]
     Indication: EMBOLISM VENOUS
     Route: 048
     Dates: start: 20131211, end: 20131217
  2. XARELTO [Suspect]
     Indication: PULMONARY EMBOLISM
     Route: 048
     Dates: start: 20131211, end: 20131217
  3. LOVENOX [Concomitant]
     Indication: PULMONARY EMBOLISM
     Route: 065
     Dates: start: 20131212, end: 201312
  4. LOVENOX [Concomitant]
     Indication: VENOUS THROMBOSIS
     Route: 065
     Dates: start: 20131212, end: 201312
  5. COVERSYL [Concomitant]
     Route: 065
  6. LEVOTHYROX [Concomitant]
     Route: 065
  7. LASILIX [Concomitant]
     Route: 042
  8. GARDENAL [Concomitant]
     Route: 065
  9. KARDEGIC [Concomitant]
     Route: 065
  10. HEMIGOXINE [Concomitant]
     Route: 065
  11. CARDENSIEL [Concomitant]
     Route: 065

REACTIONS (3)
  - Pulmonary embolism [Unknown]
  - Pelvic mass [Unknown]
  - Drug ineffective [Unknown]
